FAERS Safety Report 6342065-6 (Version None)
Quarter: 2009Q3

REPORT INFORMATION
  Report Type: 
  Country: None (occurrence: None)
  Receive Date: 20090903
  Receipt Date: 20090819
  Transmission Date: 20100115
  Serious: Yes (Other)
  Sender: FDA-Public Use
  Company Number: AUR-APL-2009-00465

PATIENT
  Age: 74 Year
  Sex: Male

DRUGS (3)
  1. ATENOLOL [Suspect]
  2. BENDROFLUAZIDE [Suspect]
  3. METHOTREXATE [Suspect]

REACTIONS (2)
  - LIP ULCERATION [None]
  - ORAL LICHEN PLANUS [None]
